FAERS Safety Report 4679617-5 (Version None)
Quarter: 2005Q2

REPORT INFORMATION
  Report Type: 
  Country: None (occurrence: None)
  Receive Date: 20050531
  Receipt Date: 20050519
  Transmission Date: 20051028
  Serious: Yes (Hospitalization)
  Sender: FDA-Public Use
  Company Number: B0381031A

PATIENT
  Age: 33 Year
  Sex: Female
  Weight: 49.8957 kg

DRUGS (6)
  1. EPIVIR-HBV [Suspect]
     Indication: HEPATITIS B
     Dosage: 100 MG / PER DAY / ORAL
     Route: 048
     Dates: start: 20050425, end: 20050511
  2. URSODEOXYCHOLIC ACID [Concomitant]
  3. VITAMEDIN [Concomitant]
  4. METOCLOPRAMIDE HCL [Concomitant]
  5. LOXOPROFEN [Concomitant]
  6. TEPRENONE [Concomitant]

REACTIONS (8)
  - ANAEMIA HAEMOLYTIC AUTOIMMUNE [None]
  - BLOOD BILIRUBIN INCREASED [None]
  - BLOOD LACTATE DEHYDROGENASE INCREASED [None]
  - HAEMODIALYSIS [None]
  - HAEMOGLOBIN DECREASED [None]
  - HAEMOLYTIC ANAEMIA [None]
  - OCCULT BLOOD POSITIVE [None]
  - RENAL IMPAIRMENT [None]
